FAERS Safety Report 7503324-4 (Version None)
Quarter: 2011Q2

REPORT INFORMATION
  Report Type: 
  Country: None (occurrence: None)
  Receive Date: 20110525
  Receipt Date: 20110513
  Transmission Date: 20111010
  Serious: Yes (Hospitalization)
  Sender: FDA-Public Use
  Company Number: PHHY2011DE42112

PATIENT
  Age: 60 Year
  Sex: Female

DRUGS (2)
  1. ZOMETA [Suspect]
     Dosage: UNK
     Route: 042
     Dates: start: 20060501, end: 20070501
  2. CORTISONE ACETATE [Concomitant]

REACTIONS (2)
  - PERIODONTITIS [None]
  - OSTEONECROSIS OF JAW [None]
